FAERS Safety Report 14515293 (Version 3)
Quarter: 2018Q2

REPORT INFORMATION
  Report Type: Report from Study
  Country: US (occurrence: US)
  Receive Date: 20180210
  Receipt Date: 20180507
  Transmission Date: 20180711
  Serious: No
  Sender: FDA-Public Use
  Company Number: PHEH2018US004967

PATIENT
  Sex: Female

DRUGS (2)
  1. COSENTYX [Suspect]
     Active Substance: SECUKINUMAB
     Indication: PRODUCT USED FOR UNKNOWN INDICATION
     Dosage: 150 MG, Q2W
     Route: 058
  2. COSENTYX [Suspect]
     Active Substance: SECUKINUMAB
     Dosage: 300 MG, QMO
     Route: 058

REACTIONS (14)
  - Pain in extremity [Not Recovered/Not Resolved]
  - Psoriasis [Unknown]
  - Pain [Not Recovered/Not Resolved]
  - Pain in jaw [Not Recovered/Not Resolved]
  - Spinal pain [Unknown]
  - Intervertebral disc protrusion [Unknown]
  - Back pain [Not Recovered/Not Resolved]
  - Anxiety [Unknown]
  - Memory impairment [Unknown]
  - Arthritis [Unknown]
  - Drug ineffective [Unknown]
  - Depression [Unknown]
  - Inappropriate schedule of drug administration [Unknown]
  - Gait inability [Unknown]
